FAERS Safety Report 14559993 (Version 2)
Quarter: 2018Q1

REPORT INFORMATION
  Report Type: Report from Study
  Country: US (occurrence: US)
  Receive Date: 20180221
  Receipt Date: 20180306
  Transmission Date: 20180509
  Serious: No
  Sender: FDA-Public Use
  Company Number: US-SHIRE-US201806324

PATIENT
  Age: 58 Year
  Sex: Female
  Weight: 72.56 kg

DRUGS (1)
  1. XIIDRA [Suspect]
     Active Substance: LIFITEGRAST
     Indication: DRY EYE
     Dosage: 1 GTT, 2X/DAY:BID
     Route: 047
     Dates: start: 20180209

REACTIONS (9)
  - Instillation site irritation [Unknown]
  - Insomnia [Unknown]
  - Instillation site pain [Not Recovered/Not Resolved]
  - Flushing [Not Recovered/Not Resolved]
  - Poor quality sleep [Unknown]
  - Feeling hot [Not Recovered/Not Resolved]
  - Vision blurred [Not Recovered/Not Resolved]
  - Dysgeusia [Not Recovered/Not Resolved]
  - Instillation site reaction [Unknown]

NARRATIVE: CASE EVENT DATE: 20180209
